FAERS Safety Report 4351681-2 (Version None)
Quarter: 2004Q2

REPORT INFORMATION
  Report Type: 
  Country: None (occurrence: None)
  Receive Date: 20040429
  Receipt Date: 20040302
  Transmission Date: 20050107
  Serious: No
  Sender: FDA-Public Use
  Company Number: 2004-114204-NL

PATIENT
  Age: 19 Year
  Sex: Female
  Weight: 59.1 kg

DRUGS (6)
  1. NUVARING [Suspect]
     Indication: MENSTRUAL DISORDER
     Dosage: DF DAILY, VAGINAL
     Route: 067
     Dates: start: 20030601
  2. PROVIGIL [Concomitant]
  3. PROZAC [Concomitant]
  4. METAMUCIL-2 [Concomitant]
  5. MULTI-VITAMIN [Concomitant]
  6. IBUPROFEN [Concomitant]

REACTIONS (1)
  - METRORRHAGIA [None]
